FAERS Safety Report 25951354 (Version 2)
Quarter: 2025Q4

REPORT INFORMATION
  Report Type: Spontaneous
  Country: US (occurrence: US)
  Receive Date: 20251023
  Receipt Date: 20251101
  Transmission Date: 20260118
  Serious: Yes (Life-Threatening, Hospitalization, Other)
  Sender: AUROBINDO
  Company Number: US-MLMSERVICE-20251006-PI667942-00101-1

PATIENT
  Age: 3 Year
  Sex: Male
  Weight: 19.9 kg

DRUGS (31)
  1. CARBOPLATIN [Suspect]
     Active Substance: CARBOPLATIN
     Indication: Hepatic cancer recurrent
     Dosage: UNK (POST-LIVER TRANSPLANT)
     Route: 065
     Dates: start: 2023, end: 2023
  2. CARBOPLATIN [Suspect]
     Active Substance: CARBOPLATIN
     Indication: Hepatoblastoma
  3. CARBOPLATIN [Suspect]
     Active Substance: CARBOPLATIN
     Indication: Hepatocellular carcinoma
  4. IRINOTECAN HYDROCHLORIDE [Suspect]
     Active Substance: IRINOTECAN HYDROCHLORIDE
     Indication: Hepatic cancer recurrent
     Dosage: UNK (CYCLE 1)
     Route: 065
     Dates: start: 2022, end: 2023
  5. IRINOTECAN HYDROCHLORIDE [Suspect]
     Active Substance: IRINOTECAN HYDROCHLORIDE
     Indication: Hepatoblastoma
     Dosage: UNK (CYCLE 1)
     Route: 065
     Dates: start: 2023, end: 2023
  6. IRINOTECAN HYDROCHLORIDE [Suspect]
     Active Substance: IRINOTECAN HYDROCHLORIDE
     Indication: Hepatocellular carcinoma
  7. OXALIPLATIN [Suspect]
     Active Substance: OXALIPLATIN
     Indication: Hepatic cancer recurrent
     Dosage: UNK
     Route: 065
     Dates: start: 2024, end: 2025
  8. OXALIPLATIN [Suspect]
     Active Substance: OXALIPLATIN
     Indication: Hepatoblastoma
  9. OXALIPLATIN [Suspect]
     Active Substance: OXALIPLATIN
     Indication: Hepatocellular carcinoma
  10. CISPLATIN [Suspect]
     Active Substance: CISPLATIN
     Indication: Hepatic cancer recurrent
     Dosage: UNK (C5VD CYCLE 1,2,3,4)
     Route: 065
     Dates: start: 2022, end: 2022
  11. CISPLATIN [Suspect]
     Active Substance: CISPLATIN
     Indication: Hepatoblastoma
     Dosage: UNK (C5VD CYCLE 5 AND 6 (POST-LIVER TRANSPLANT))
     Route: 065
     Dates: start: 2023, end: 2023
  12. CISPLATIN [Suspect]
     Active Substance: CISPLATIN
     Indication: Hepatocellular carcinoma
     Dosage: UNK (ELEVEN MONTHS POST-TRANSPLANT)
     Route: 065
     Dates: start: 2024, end: 2024
  13. DOXORUBICIN [Suspect]
     Active Substance: DOXORUBICIN
     Indication: Hepatic cancer recurrent
     Dosage: UNK (C5VD CYCLE 1,2,3,4)
     Route: 065
     Dates: start: 2022, end: 2022
  14. DOXORUBICIN [Suspect]
     Active Substance: DOXORUBICIN
     Indication: Hepatoblastoma
     Dosage: UNK (C5VD CYCLE 5 AND 6 (POST-LIVER TRANSPLANT))
     Route: 065
     Dates: start: 2023, end: 2023
  15. DOXORUBICIN [Suspect]
     Active Substance: DOXORUBICIN
     Indication: Hepatocellular carcinoma
  16. FLUOROURACIL [Suspect]
     Active Substance: FLUOROURACIL
     Indication: Hepatic cancer recurrent
     Dosage: UNK (C5VD CYCLE 1,2,3,4)
     Route: 065
     Dates: start: 2022, end: 2022
  17. FLUOROURACIL [Suspect]
     Active Substance: FLUOROURACIL
     Indication: Hepatoblastoma
     Dosage: UNK (C5VD CYCLE 5 AND 6 (POST-LIVER TRANSPLANT))
     Route: 065
     Dates: start: 2023, end: 2023
  18. FLUOROURACIL [Suspect]
     Active Substance: FLUOROURACIL
     Indication: Hepatocellular carcinoma
  19. VINCRISTINE [Suspect]
     Active Substance: VINCRISTINE
     Indication: Hepatic cancer recurrent
     Dosage: UNK (C5VD CYCLE 1,2,3,4)
     Route: 065
     Dates: start: 2022, end: 2022
  20. VINCRISTINE [Suspect]
     Active Substance: VINCRISTINE
     Indication: Hepatoblastoma
     Dosage: UNK (C5VD CYCLE 5 AND 6 (POST-LIVER TRANSPLANT))
     Route: 065
     Dates: start: 2023, end: 2023
  21. VINCRISTINE [Suspect]
     Active Substance: VINCRISTINE
     Indication: Hepatocellular carcinoma
     Dosage: UNK (CYCLE 1)
     Route: 065
     Dates: start: 2022, end: 2023
  22. VINCRISTINE [Suspect]
     Active Substance: VINCRISTINE
     Dosage: UNK (CYCLE 2)
     Route: 065
     Dates: start: 2023, end: 2023
  23. ETOPOSIDE [Suspect]
     Active Substance: ETOPOSIDE
     Indication: Hepatic cancer recurrent
     Dosage: UNK (POST-LIVER TRANSPLANT)
     Route: 065
     Dates: start: 2023, end: 2023
  24. ETOPOSIDE [Suspect]
     Active Substance: ETOPOSIDE
     Indication: Hepatoblastoma
  25. ETOPOSIDE [Suspect]
     Active Substance: ETOPOSIDE
     Indication: Hepatocellular carcinoma
  26. VORINOSTAT [Suspect]
     Active Substance: VORINOSTAT
     Indication: Hepatic cancer recurrent
     Dosage: UNK (ELEVEN MONTHS POST-TRANSPLANT)
     Route: 065
     Dates: start: 2024, end: 2024
  27. VORINOSTAT [Suspect]
     Active Substance: VORINOSTAT
     Indication: Hepatoblastoma
  28. VORINOSTAT [Suspect]
     Active Substance: VORINOSTAT
     Indication: Hepatocellular carcinoma
  29. GEMCITABINE [Suspect]
     Active Substance: GEMCITABINE
     Indication: Hepatic cancer recurrent
     Dosage: UNK
     Route: 065
     Dates: start: 2024, end: 2025
  30. GEMCITABINE [Suspect]
     Active Substance: GEMCITABINE
     Indication: Hepatoblastoma
  31. GEMCITABINE [Suspect]
     Active Substance: GEMCITABINE
     Indication: Hepatocellular carcinoma

REACTIONS (1)
  - Radiation hepatitis [Recovered/Resolved]

NARRATIVE: CASE EVENT DATE: 20240101
